FAERS Safety Report 5484059-9 (Version None)
Quarter: 2007Q4

REPORT INFORMATION
  Report Type: 
  Country: None (occurrence: None)
  Receive Date: 20071012
  Receipt Date: 20071001
  Transmission Date: 20080405
  Serious: Yes (Life-Threatening, Hospitalization, Other)
  Sender: FDA-Public Use
  Company Number: DE-ROCHE-511193

PATIENT
  Age: 43 Year
  Sex: Female
  Weight: 65 kg

DRUGS (1)
  1. XELODA [Suspect]
     Route: 048
     Dates: start: 20070601, end: 20070614

REACTIONS (16)
  - COLITIS ULCERATIVE [None]
  - DEEP VEIN THROMBOSIS [None]
  - DIARRHOEA [None]
  - HYPOKALAEMIA [None]
  - ILEUS PARALYTIC [None]
  - LEUKOPENIA [None]
  - METASTASES TO LYMPH NODES [None]
  - METASTASES TO PERITONEUM [None]
  - OESOPHAGEAL STENOSIS [None]
  - OESOPHAGITIS [None]
  - PLEURAL EFFUSION [None]
  - PNEUMONIA [None]
  - PNEUMOTHORAX [None]
  - SEPSIS [None]
  - THROMBOCYTOPENIA [None]
  - TYMPANIC MEMBRANE DISORDER [None]
